FAERS Safety Report 9780857 (Version 2)
Quarter: 2014Q1

REPORT INFORMATION
  Report Type: Spontaneous
  Country: SE (occurrence: SE)
  Receive Date: 20131224
  Receipt Date: 20140225
  Transmission Date: 20141002
  Serious: Yes (Hospitalization)
  Sender: FDA-Public Use
  Company Number: SE-ELI_LILLY_AND_COMPANY-SE201312006754

PATIENT
  Age: 39 Year
  Sex: Female

DRUGS (3)
  1. CYMBALTA [Suspect]
     Indication: PANIC DISORDER
     Dosage: 30 MG, QD
     Route: 065
  2. CYMBALTA [Suspect]
     Indication: BIPOLAR DISORDER
     Dosage: 60 MG, QD
     Route: 065
     Dates: end: 2012
  3. CYMBALTA [Suspect]
     Dosage: 90 MG, QD
     Route: 065
     Dates: start: 201304, end: 201310

REACTIONS (2)
  - Pancreatitis chronic [Not Recovered/Not Resolved]
  - Off label use [Unknown]
